FAERS Safety Report 19409090 (Version 1)
Quarter: 2021Q2

REPORT INFORMATION
  Report Type: Spontaneous
  Country: ES (occurrence: ES)
  Receive Date: 20210613
  Receipt Date: 20210613
  Transmission Date: 20210717
  Serious: Yes (Hospitalization, Other)
  Sender: FDA-Public Use
  Company Number: ES-AUROBINDO-AUR-APL-2021-024508

PATIENT
  Age: 81 Year
  Sex: Female

DRUGS (6)
  1. LORMETAZEPAM NORMON [Concomitant]
     Active Substance: LORMETAZEPAM
     Indication: INSOMNIA
     Dosage: 1 MILLIGRAM, ONCE A DAY
     Route: 048
     Dates: start: 20100112
  2. IBANDRONIC ACID. [Suspect]
     Active Substance: IBANDRONIC ACID
     Indication: OSTEOPOROSIS
     Dosage: 150 MILLIGRAM 28 DAY
     Route: 048
     Dates: start: 20090206
  3. CIDINE [Concomitant]
     Indication: ABDOMINAL PAIN
     Dosage: 1 MILLIGRAM, TWO TIMES A DAY
     Route: 065
     Dates: start: 20200914
  4. SIMVASTATIN RATIOPHARM [Concomitant]
     Active Substance: SIMVASTATIN
     Indication: TYPE IIA HYPERLIPIDAEMIA
     Dosage: 10 MILLIGRAM, ONCE A DAY
     Route: 048
     Dates: start: 20201230
  5. PROLIA [Concomitant]
     Active Substance: DENOSUMAB
     Indication: OSTEOPOROSIS
     Dosage: UNK
     Route: 058
     Dates: start: 20140201
  6. CALCIUM + VITAMIN D3 [Concomitant]
     Active Substance: CALCIUM CARBONATE\CHOLECALCIFEROL
     Indication: OSTEOARTHRITIS
     Dosage: 1 DOSAGE FORM, ONCE A DAY
     Route: 048
     Dates: start: 20201231

REACTIONS (2)
  - Fibula fracture [Recovering/Resolving]
  - Atypical femur fracture [Recovering/Resolving]

NARRATIVE: CASE EVENT DATE: 20210519
